FAERS Safety Report 11734111 (Version 6)
Quarter: 2019Q3

REPORT INFORMATION
  Report Type: Spontaneous
  Country: FR (occurrence: FR)
  Receive Date: 20151113
  Receipt Date: 20190822
  Transmission Date: 20191004
  Serious: Yes (Death, Hospitalization)
  Sender: FDA-Public Use
  Company Number: FR-SUN PHARMACEUTICAL INDUSTRIES LTD-2015R1-105911

PATIENT
  Age: 80 Year
  Sex: Female
  Weight: 60 kg

DRUGS (15)
  1. CALCIUM FOLINATE [Concomitant]
     Active Substance: LEUCOVORIN CALCIUM
     Indication: PROPHYLAXIS
     Dosage: 25 MILLIGRAM, WEEKLY
     Route: 065
  2. BORTEZOMIB. [Interacting]
     Active Substance: BORTEZOMIB
     Indication: PLASMA CELL MYELOMA
     Dosage: 1.3 MG/M^2 (DAY 1, 4, 8, 11, 22, 25, 29, 32)
     Route: 058
     Dates: start: 20140401, end: 20140502
  3. OMEPRAZOLE. [Interacting]
     Active Substance: OMEPRAZOLE
     Dosage: 20 MILLIGRAM
  4. ATORVASTATIN [Interacting]
     Active Substance: ATORVASTATIN
     Indication: HYPERCHOLESTEROLAEMIA
     Dosage: UNK
     Route: 065
     Dates: end: 20140413
  5. OMEPRAZOLE. [Interacting]
     Active Substance: OMEPRAZOLE
     Dosage: 20 MILLIGRAM
  6. VALACICLOVIR [Interacting]
     Active Substance: VALACYCLOVIR HYDROCHLORIDE
     Dosage: 500 MILLIGRAM
  7. MELPHALAN. [Interacting]
     Active Substance: MELPHALAN
     Indication: PLASMA CELL MYELOMA
     Dosage: 9 MG/M^2 (16 MG) FROM DAY 1 TO 4
     Route: 065
     Dates: start: 20140401, end: 20140404
  8. PREDNISONE. [Concomitant]
     Active Substance: PREDNISONE
     Indication: PLASMA CELL MYELOMA
     Dosage: 60 MG/M^2
     Route: 065
     Dates: start: 20140401, end: 20141004
  9. COTRIMOXAZOLE [Suspect]
     Active Substance: SULFAMETHOXAZOLE\TRIMETHOPRIM
     Indication: ANTIFUNGAL PROPHYLAXIS
     Dosage: UNK, 3/WEEK, FROM DAY 26 OF HOSPITAILZATION ()
     Route: 065
     Dates: start: 201404
  10. CANDESARTAN. [Interacting]
     Active Substance: CANDESARTAN
     Indication: HYPERTENSION
     Dosage: UNK
     Route: 065
     Dates: end: 20140413
  11. SOTALOL. [Concomitant]
     Active Substance: SOTALOL
     Indication: HYPERTENSION
     Dosage: UNK
     Route: 065
     Dates: end: 20140413
  12. COTRIMOXAZOLE [Interacting]
     Active Substance: SULFAMETHOXAZOLE\TRIMETHOPRIM
     Dosage: UNK UNK, WEEKLY, FORM STRENGTH: 160/800 MG ()
     Route: 065
     Dates: start: 201404, end: 201404
  13. OMEPRAZOLE. [Interacting]
     Active Substance: OMEPRAZOLE
     Indication: PROPHYLAXIS
     Dosage: 20 MG, QD
     Route: 065
  14. VALACICLOVIR [Interacting]
     Active Substance: VALACYCLOVIR HYDROCHLORIDE
     Indication: PROPHYLAXIS
     Dosage: 500 MILLIGRAM, DAILY
     Route: 065
     Dates: start: 2014, end: 2014
  15. VALACICLOVIR [Interacting]
     Active Substance: VALACYCLOVIR HYDROCHLORIDE
     Dosage: 500 MILLIGRAM

REACTIONS (23)
  - Pancytopenia [Fatal]
  - Somnolence [Fatal]
  - Hyperkalaemia [Recovered/Resolved]
  - Muscular weakness [Fatal]
  - Hyponatraemia [Recovered/Resolved]
  - Drug level increased [Recovered/Resolved]
  - Septic shock [Fatal]
  - Altered state of consciousness [Recovering/Resolving]
  - Toxicity to various agents [Fatal]
  - Oliguria [Fatal]
  - Urine abnormality [Fatal]
  - Vomiting [Fatal]
  - Drug interaction [Fatal]
  - Sepsis [Fatal]
  - Back pain [Fatal]
  - Hypotension [Fatal]
  - Acute kidney injury [Fatal]
  - Pyrexia [Fatal]
  - Chills [Fatal]
  - Confusional state [Fatal]
  - Diarrhoea [Fatal]
  - Syncope [Fatal]
  - Polyneuropathy [Fatal]

NARRATIVE: CASE EVENT DATE: 2014
